FAERS Safety Report 22624557 (Version 1)
Quarter: 2023Q2

REPORT INFORMATION
  Report Type: Report from Study
  Country: JP (occurrence: JP)
  Receive Date: 20230621
  Receipt Date: 20230621
  Transmission Date: 20230722
  Serious: Yes (Other)
  Sender: FDA-Public Use
  Company Number: JP-OTSUKA-2023_013661AA

PATIENT
  Sex: Female

DRUGS (31)
  1. TOLVAPTAN [Suspect]
     Active Substance: TOLVAPTAN
     Indication: Cardiac failure
     Dosage: 8 MG/DAY, QD
     Route: 041
     Dates: start: 20230412, end: 20230413
  2. TOLVAPTAN [Suspect]
     Active Substance: TOLVAPTAN
     Indication: Fluid retention
  3. SAMSCA [Suspect]
     Active Substance: TOLVAPTAN
     Indication: Product used for unknown indication
     Dosage: 7.5 MG/DAY
     Route: 048
     Dates: start: 20230414, end: 20230414
  4. SAMSCA [Suspect]
     Active Substance: TOLVAPTAN
     Dosage: 3.75 MG/DAY
     Route: 048
     Dates: start: 20230415, end: 20230416
  5. SAMSCA [Suspect]
     Active Substance: TOLVAPTAN
     Dosage: 7.5 MG/DAY
     Route: 048
     Dates: start: 20230420, end: 20230421
  6. CARPERITIDE [Concomitant]
     Active Substance: CARPERITIDE
     Indication: Product used for unknown indication
     Dosage: 3360 MCG/DAY
     Route: 050
     Dates: start: 20230411, end: 20230412
  7. CARPERITIDE [Concomitant]
     Active Substance: CARPERITIDE
     Dosage: 6720 MCG/DAY
     Route: 050
     Dates: start: 20230412, end: 20230413
  8. CARPERITIDE [Concomitant]
     Active Substance: CARPERITIDE
     Dosage: 3360 MCG/DAY
     Route: 050
     Dates: start: 20230413, end: 20230415
  9. CARPERITIDE [Concomitant]
     Active Substance: CARPERITIDE
     Dosage: 1680 MCG/DAY
     Route: 050
     Dates: start: 20230415, end: 20230417
  10. CARPERITIDE [Concomitant]
     Active Substance: CARPERITIDE
     Dosage: 672 MCG/DAY
     Route: 050
     Dates: start: 20230417, end: 20230418
  11. CARPERITIDE [Concomitant]
     Active Substance: CARPERITIDE
     Dosage: 336 MCG/DAY
     Route: 050
     Dates: start: 20230418, end: 20230419
  12. LASIX [Concomitant]
     Active Substance: FUROSEMIDE
     Indication: Product used for unknown indication
     Dosage: 240 MG/DAY
     Route: 050
     Dates: start: 20230412, end: 20230412
  13. LASIX [Concomitant]
     Active Substance: FUROSEMIDE
     Dosage: 120 MG/DAY
     Route: 050
     Dates: start: 20230413, end: 20230413
  14. LASIX [Concomitant]
     Active Substance: FUROSEMIDE
     Dosage: 40 MG/DAY
     Route: 050
     Dates: start: 20230414, end: 20230415
  15. MANNITOL [Concomitant]
     Active Substance: MANNITOL
     Indication: Product used for unknown indication
     Dosage: 3.84 G/DAY
     Route: 050
     Dates: start: 20230412, end: 20230413
  16. MANNITOL [Concomitant]
     Active Substance: MANNITOL
     Dosage: 1.92 G/DAY
     Route: 050
     Dates: start: 20230413, end: 20230414
  17. MANNITOL [Concomitant]
     Active Substance: MANNITOL
     Dosage: 0.64 G/DAY
     Route: 050
     Dates: start: 20230414, end: 20230415
  18. AZOSEMIDE [Concomitant]
     Active Substance: AZOSEMIDE
     Indication: Product used for unknown indication
     Dosage: 60 MG/DAY
     Route: 048
     Dates: start: 20230412
  19. SPIRONOLACTONE [Concomitant]
     Active Substance: SPIRONOLACTONE
     Indication: Product used for unknown indication
     Dosage: 25 MG/DAY
     Route: 048
     Dates: start: 20230425
  20. NOREPINEPHRINE [Concomitant]
     Active Substance: NOREPINEPHRINE
     Indication: Cardiac failure
     Dosage: UNK
     Route: 050
     Dates: start: 20230411, end: 20230420
  21. DEXMEDETOMIDINE HYDROCHLORIDE [Concomitant]
     Active Substance: DEXMEDETOMIDINE HYDROCHLORIDE
     Indication: Sedation
     Dosage: UNK
     Route: 050
     Dates: start: 20230411, end: 20230413
  22. DOBUTAMINE HYDROCHLORIDE [Concomitant]
     Active Substance: DOBUTAMINE HYDROCHLORIDE
     Indication: Cardiac failure
     Dosage: UNK
     Route: 050
     Dates: start: 20230411, end: 20230413
  23. MILRINONE [Concomitant]
     Active Substance: MILRINONE
     Indication: Cardiac failure
     Dosage: UNK
     Route: 050
     Dates: start: 20230411, end: 20230413
  24. HEPARIN SODIUM [Concomitant]
     Active Substance: HEPARIN SODIUM
     Indication: Prophylaxis
     Dosage: UNK
     Route: 050
     Dates: start: 20230412, end: 20230413
  25. EDOXABAN TOSYLATE [Concomitant]
     Active Substance: EDOXABAN TOSYLATE
     Indication: Prophylaxis
     Dosage: UNK
     Route: 048
     Dates: start: 20230412
  26. VONOPRAZAN FUMARATE [Concomitant]
     Active Substance: VONOPRAZAN FUMARATE
     Indication: Prophylaxis
     Dosage: UNK
     Route: 048
     Dates: start: 20230412
  27. BISOPROLOL FUMARATE [Concomitant]
     Active Substance: BISOPROLOL FUMARATE
     Indication: Cardiac failure
     Dosage: UNK
     Route: 048
     Dates: start: 20230412
  28. BELSOMRA [Concomitant]
     Active Substance: SUVOREXANT
     Indication: Prophylaxis
     Dosage: UNK
     Route: 048
     Dates: start: 20230412, end: 20230413
  29. ROZEREM [Concomitant]
     Active Substance: RAMELTEON
     Indication: Prophylaxis
     Dosage: UNK
     Route: 048
     Dates: start: 20230412, end: 20230417
  30. MAGNESIUM OXIDE [Concomitant]
     Active Substance: MAGNESIUM OXIDE
     Indication: Prophylaxis
     Dosage: UNK
     Route: 048
     Dates: start: 20230412
  31. DIETARY SUPPLEMENT\PROBIOTICS [Concomitant]
     Active Substance: DIETARY SUPPLEMENT\PROBIOTICS NOS
     Indication: Prophylaxis
     Dosage: UNK
     Route: 048
     Dates: start: 20230412

REACTIONS (2)
  - Delirium [Unknown]
  - Underdose [Unknown]

NARRATIVE: CASE EVENT DATE: 20230415
